FAERS Safety Report 4953429-7 (Version None)
Quarter: 2006Q1

REPORT INFORMATION
  Report Type: 
  Country: None (occurrence: None)
  Receive Date: 20060324
  Receipt Date: 20060316
  Transmission Date: 20060701
  Serious: Yes (Other)
  Sender: FDA-Public Use
  Company Number: MY-ABBOTT-06P-056-0328266-00

PATIENT
  Age: 70 Year
  Sex: Male

DRUGS (1)
  1. LIPANTHYL SUPRA 160 LM TABLETS [Suspect]
     Indication: HYPERTRIGLYCERIDAEMIA
     Route: 048

REACTIONS (1)
  - DERMATITIS EXFOLIATIVE [None]
